FAERS Safety Report 6156628-4 (Version None)
Quarter: 2009Q2

REPORT INFORMATION
  Report Type: 
  Country: None (occurrence: None)
  Receive Date: 20090416
  Receipt Date: 20090408
  Transmission Date: 20091009
  Serious: Yes (Hospitalization)
  Sender: FDA-Public Use
  Company Number: US-ROCHE-626808

PATIENT
  Age: 39 Year
  Sex: Female
  Weight: 79.4 kg

DRUGS (6)
  1. DIAZEPAM [Suspect]
     Indication: DRUG USE FOR UNKNOWN INDICATION
     Route: 065
     Dates: start: 20090201
  2. DIAZEPAM [Suspect]
     Route: 065
  3. LORTAB [Suspect]
     Indication: DRUG USE FOR UNKNOWN INDICATION
     Route: 065
     Dates: start: 20090201
  4. LORTAB [Suspect]
     Route: 065
  5. PEG-INTRON [Suspect]
     Indication: HEPATITIS C
     Route: 065
     Dates: start: 20090102
  6. REBETOL [Suspect]
     Indication: HEPATITIS C
     Route: 048
     Dates: start: 20090102

REACTIONS (11)
  - ALCOHOL ABUSE [None]
  - ASTHENIA [None]
  - CRYING [None]
  - DEPRESSION [None]
  - DYSPNOEA [None]
  - INSOMNIA [None]
  - INTENTIONAL OVERDOSE [None]
  - RESPIRATORY TRACT CONGESTION [None]
  - SPUTUM DISCOLOURED [None]
  - SUICIDE ATTEMPT [None]
  - WEIGHT DECREASED [None]
